FAERS Safety Report 17829854 (Version 1)
Quarter: 2020Q2

REPORT INFORMATION
  Report Type: Spontaneous
  Country: US (occurrence: US)
  Receive Date: 20200527
  Receipt Date: 20200527
  Transmission Date: 20200714
  Serious: Yes (Hospitalization)
  Sender: FDA-Public Use
  Company Number: None

PATIENT
  Age: 64 Year
  Sex: Male

DRUGS (14)
  1. METOPROLOL TARTRATE. [Concomitant]
     Active Substance: METOPROLOL TARTRATE
  2. SODIUM BICAR [Concomitant]
  3. AMLODIPINE [Concomitant]
     Active Substance: AMLODIPINE BESYLATE
  4. CALCITRIOL. [Concomitant]
     Active Substance: CALCITRIOL
  5. CLOPIDOGREL [Concomitant]
     Active Substance: CLOPIDOGREL BISULFATE
  6. FUROSEMIDE. [Concomitant]
     Active Substance: FUROSEMIDE
  7. MONTELUKAST [Concomitant]
     Active Substance: MONTELUKAST SODIUM
  8. MULTIVITAMIN [Concomitant]
     Active Substance: VITAMINS
  9. ULORIC [Concomitant]
     Active Substance: FEBUXOSTAT
  10. VITAMIN B [Concomitant]
     Active Substance: VITAMIN B
  11. ARANESP [Suspect]
     Active Substance: DARBEPOETIN ALFA
     Indication: ANAEMIA
     Dosage: ?          OTHER FREQUENCY:Q WEEK;?
     Route: 058
     Dates: start: 20191004
  12. DESLORATADIN [Concomitant]
     Active Substance: DESLORATADINE
  13. AURYXIA [Concomitant]
     Active Substance: TETRAFERRIC TRICITRATE DECAHYDRATE
  14. CRESTOR [Concomitant]
     Active Substance: ROSUVASTATIN CALCIUM

REACTIONS (2)
  - Therapy interrupted [None]
  - Hospitalisation [None]
